FAERS Safety Report 8083678-3 (Version None)
Quarter: 2012Q1

REPORT INFORMATION
  Report Type: 
  Country: None (occurrence: None)
  Receive Date: 20120127
  Receipt Date: 20110122
  Transmission Date: 20120608
  Serious: No
  Sender: FDA-Public Use
  Company Number: US-ABBOTT-11P-163-0700084-00

PATIENT
  Age: 54 Year
  Sex: Female

DRUGS (7)
  1. HYDROCHLOROTHIAZIDE [Concomitant]
     Indication: BLOOD PRESSURE
  2. HUMIRA [Suspect]
     Dates: start: 20110121, end: 20110121
  3. HUMIRA [Suspect]
     Indication: PSORIASIS
     Dates: start: 20110114, end: 20110114
  4. HUMIRA [Suspect]
  5. METFFORMIN HYDROCHLORIDE [Concomitant]
     Indication: DIABETES MELLITUS
  6. FOLIC ACID [Concomitant]
     Indication: PRODUCT USED FOR UNKNOWN INDICATION
  7. FASTIN [Concomitant]
     Indication: WEIGHT CONTROL

REACTIONS (1)
  - INJECTION SITE PAIN [None]
